FAERS Safety Report 7820596-7 (Version None)
Quarter: 2011Q4

REPORT INFORMATION
  Report Type: 
  Country: None (occurrence: None)
  Receive Date: 20111018
  Receipt Date: 20111013
  Transmission Date: 20120403
  Serious: Yes (Other)
  Sender: FDA-Public Use
  Company Number: US-TEVA-304757USA

PATIENT
  Sex: Female

DRUGS (1)
  1. TERBINAFINE HCL [Suspect]
     Indication: ONYCHOMYCOSIS
     Dates: start: 20110907, end: 20110929

REACTIONS (15)
  - ABDOMINAL PAIN UPPER [None]
  - PHARYNGEAL OEDEMA [None]
  - HEADACHE [None]
  - BLOOD CORTISOL DECREASED [None]
  - TOXICITY TO VARIOUS AGENTS [None]
  - APHAGIA [None]
  - HYPERSENSITIVITY [None]
  - URTICARIA [None]
  - ABDOMINAL DISCOMFORT [None]
  - DYSPNOEA [None]
  - MYALGIA [None]
  - WHITE BLOOD CELL COUNT INCREASED [None]
  - BLOOD POTASSIUM DECREASED [None]
  - MALAISE [None]
  - ABDOMINAL PAIN [None]
